FAERS Safety Report 18689382 (Version 2)
Quarter: 2021Q1

REPORT INFORMATION
  Report Type: Report from Study
  Country: US (occurrence: US)
  Receive Date: 20201231
  Receipt Date: 20210106
  Transmission Date: 20210419
  Serious: Yes (Other)
  Sender: FDA-Public Use
  Company Number: US-JNJFOC-20201252748

PATIENT
  Age: 77 Year
  Sex: Female

DRUGS (3)
  1. OPSUMIT [Suspect]
     Active Substance: MACITENTAN
     Indication: PRODUCT USED FOR UNKNOWN INDICATION
     Route: 065
     Dates: start: 202012
  2. TADALAFIL. [Concomitant]
     Active Substance: TADALAFIL
     Dates: start: 20201015
  3. XARELTO [Suspect]
     Active Substance: RIVAROXABAN
     Indication: PRODUCT USED FOR UNKNOWN INDICATION
     Route: 065

REACTIONS (8)
  - Wheezing [Unknown]
  - Thrombosis [Unknown]
  - Nasopharyngitis [Recovering/Resolving]
  - Dyspnoea exertional [Unknown]
  - Gingival bleeding [Recovered/Resolved]
  - Peripheral swelling [Not Recovered/Not Resolved]
  - Weight increased [Unknown]
  - Product dose omission issue [Recovered/Resolved]

NARRATIVE: CASE EVENT DATE: 202012
